FAERS Safety Report 14319251 (Version 4)
Quarter: 2018Q2

REPORT INFORMATION
  Report Type: Spontaneous
  Country: FR (occurrence: FR)
  Receive Date: 20171222
  Receipt Date: 20180419
  Transmission Date: 20180711
  Serious: Yes (Hospitalization)
  Sender: FDA-Public Use
  Company Number: FR-PFIZER INC-2017543592

PATIENT
  Age: 78 Year
  Sex: Female

DRUGS (8)
  1. XELODA [Suspect]
     Active Substance: CAPECITABINE
     Indication: RECTAL ADENOCARCINOMA
     Dosage: 150 MG, UNK
     Route: 048
     Dates: start: 20170710, end: 20170710
  2. MACROGOL [Concomitant]
     Active Substance: POLYETHYLENE GLYCOLS
     Dosage: UNK
     Dates: start: 201704
  3. LACTULOSE. [Suspect]
     Active Substance: LACTULOSE
     Dosage: UNK
  4. LOVENOX [Suspect]
     Active Substance: ENOXAPARIN SODIUM
     Dosage: UNK
  5. MODAMIDE [Suspect]
     Active Substance: AMILORIDE HYDROCHLORIDE
     Dosage: 5 MG, 1X/DAY
     Route: 048
     Dates: start: 201704
  6. ALPRAZOLAM. [Suspect]
     Active Substance: ALPRAZOLAM
     Dosage: 0.25 MG, 1X/DAY
     Dates: start: 201704
  7. PARACETAMOL [Suspect]
     Active Substance: ACETAMINOPHEN
     Dosage: UNK
     Dates: start: 201704
  8. MONOPROST [Suspect]
     Active Substance: LATANOPROST
     Dosage: UNK
     Dates: start: 201704

REACTIONS (5)
  - Memory impairment [Recovered/Resolved]
  - Aphasia [Recovered/Resolved]
  - Ataxia [Recovered/Resolved]
  - Confusional state [Recovered/Resolved]
  - Balance disorder [Recovered/Resolved]

NARRATIVE: CASE EVENT DATE: 20170711
